FAERS Safety Report 8283014-3 (Version None)
Quarter: 2012Q2

REPORT INFORMATION
  Report Type: 
  Country: None (occurrence: None)
  Receive Date: 20120413
  Receipt Date: 20120326
  Transmission Date: 20120825
  Serious: Yes (Hospitalization)
  Sender: FDA-Public Use
  Company Number: US-ROCHE-1019509

PATIENT
  Sex: Female
  Weight: 72.7 kg

DRUGS (6)
  1. OMALIZUMAB [Suspect]
     Indication: ASTHMA
     Route: 058
     Dates: start: 20070102
  2. SINGULAIR [Concomitant]
     Route: 065
  3. PREDNISOLONE [Concomitant]
     Route: 065
  4. SYMBICORT [Concomitant]
     Route: 065
  5. ALBUTEROL [Concomitant]
     Route: 065
  6. VALSARTAN [Concomitant]
     Route: 065

REACTIONS (3)
  - UPPER RESPIRATORY TRACT INFECTION [None]
  - ASTHMA [None]
  - SINUSITIS [None]
